FAERS Safety Report 16164901 (Version 2)
Quarter: 2019Q3

REPORT INFORMATION
  Report Type: Spontaneous
  Country: JP (occurrence: JP)
  Receive Date: 20190405
  Receipt Date: 20190709
  Transmission Date: 20191004
  Serious: Yes (Hospitalization)
  Sender: FDA-Public Use
  Company Number: JP-CELGENEUS-JPN-20190300450

PATIENT
  Age: 75 Year
  Sex: Female

DRUGS (2)
  1. ISTODAX [Suspect]
     Active Substance: ROMIDEPSIN
     Indication: ANGIOIMMUNOBLASTIC T-CELL LYMPHOMA
     Dosage: UNKNOWN
     Route: 041
     Dates: end: 201903
  2. ISTODAX [Suspect]
     Active Substance: ROMIDEPSIN
     Dosage: UNKNOWN
     Route: 041
     Dates: start: 2019

REACTIONS (2)
  - Infection [Recovered/Resolved]
  - Diffuse large B-cell lymphoma [Not Recovered/Not Resolved]

NARRATIVE: CASE EVENT DATE: 201903
